FAERS Safety Report 18600047 (Version 1)
Quarter: 2020Q4

REPORT INFORMATION
  Report Type: Spontaneous
  Country: PL (occurrence: PL)
  Receive Date: 20201210
  Receipt Date: 20201210
  Transmission Date: 20210114
  Serious: Yes (Other)
  Sender: FDA-Public Use
  Company Number: PL-AMGEN-POLSP2020189599

PATIENT
  Age: 33 Year
  Sex: Female

DRUGS (4)
  1. METHOTREXATUM [METHOTREXATE] [Concomitant]
     Dosage: UNK
     Route: 058
  2. METHOTREXATUM [METHOTREXATE] [Concomitant]
     Dosage: UNK
  3. ETANERCEPT [Suspect]
     Active Substance: ETANERCEPT
     Indication: PRODUCT USED FOR UNKNOWN INDICATION
     Dosage: UNK
     Route: 065
     Dates: start: 20200129
  4. HYDROXYCHLOROQUINE [Concomitant]
     Active Substance: HYDROXYCHLOROQUINE
     Dosage: UNK

REACTIONS (4)
  - Injection site reaction [Unknown]
  - Injection site erythema [Unknown]
  - Injection site extravasation [Unknown]
  - Injection site pruritus [Unknown]
